FAERS Safety Report 14916149 (Version 2)
Quarter: 2018Q2

REPORT INFORMATION
  Report Type: Spontaneous
  Country: US (occurrence: US)
  Receive Date: 20180518
  Receipt Date: 20180601
  Transmission Date: 20180711
  Serious: Yes (Hospitalization)
  Sender: FDA-Public Use
  Company Number: US-VIFOR (INTERNATIONAL) INC.-VIT-2018-04575

PATIENT
  Age: 72 Year
  Sex: Male

DRUGS (13)
  1. AMLODIPINE BESILATE~~VALSARTAN [Concomitant]
  2. SINEMET [Concomitant]
     Active Substance: CARBIDOPA\LEVODOPA
  3. LEVODOPA~~CARBIDOPA [Concomitant]
  4. CALCIUM [Concomitant]
     Active Substance: CALCIUM
  5. TORASEMIDE [Concomitant]
     Active Substance: TORSEMIDE
  6. AMLODIPINE BESILATE [Concomitant]
     Active Substance: AMLODIPINE BESYLATE
  7. ACETYLSALICYLIC ACID [Concomitant]
     Active Substance: ASPIRIN
  8. MAGNESIUM [Concomitant]
     Active Substance: MAGNESIUM
  9. MIRAPEX [Concomitant]
     Active Substance: PRAMIPEXOLE DIHYDROCHLORIDE
  10. VITAMINS NOS [Concomitant]
     Active Substance: VITAMINS
  11. VELTASSA [Suspect]
     Active Substance: PATIROMER
     Indication: HYPERKALAEMIA
     Route: 048
     Dates: start: 20160114
  12. TRIHEXYPHENIDYL HYDROCHLORIDE. [Concomitant]
     Active Substance: TRIHEXYPHENIDYL HYDROCHLORIDE
  13. ALLOPURINOL. [Concomitant]
     Active Substance: ALLOPURINOL

REACTIONS (1)
  - Hospitalisation [Unknown]

NARRATIVE: CASE EVENT DATE: 201805
